FAERS Safety Report 4999385-7 (Version None)
Quarter: 2006Q2

REPORT INFORMATION
  Report Type: 
  Country: None (occurrence: None)
  Receive Date: 20060509
  Receipt Date: 20060509
  Transmission Date: 20061013
  Serious: Yes (Life-Threatening, Hospitalization)
  Sender: FDA-Public Use
  Company Number: None

PATIENT
  Age: 41 Year
  Sex: Male
  Weight: 49.8957 kg

DRUGS (4)
  1. ACETAMINOPHEN [Suspect]
     Indication: HEADACHE
     Dosage: 1-2 TAB/NIGHT
  2. ZYPREXA [Concomitant]
  3. EFFEXOR [Concomitant]
  4. NIACIN [Concomitant]

REACTIONS (8)
  - ALANINE AMINOTRANSFERASE INCREASED [None]
  - ASPARTATE AMINOTRANSFERASE INCREASED [None]
  - BLOOD CREATININE INCREASED [None]
  - DYSPNOEA EXERTIONAL [None]
  - HYPOAESTHESIA [None]
  - MALAISE [None]
  - NAUSEA [None]
  - PAIN IN EXTREMITY [None]
